FAERS Safety Report 10888221 (Version 1)
Quarter: 2015Q1

REPORT INFORMATION
  Report Type: Spontaneous
  Country: IL (occurrence: IL)
  Receive Date: 20150304
  Receipt Date: 20150304
  Transmission Date: 20150721
  Serious: Yes (Hospitalization)
  Sender: FDA-Public Use
  Company Number: PHHY2015IL025488

PATIENT
  Sex: Male

DRUGS (1)
  1. SIMULECT [Suspect]
     Active Substance: BASILIXIMAB
     Indication: LIVER TRANSPLANT
     Route: 065

REACTIONS (4)
  - Ascites [Unknown]
  - Interleukin level increased [Unknown]
  - Liver transplant rejection [Unknown]
  - Product use issue [Unknown]
